FAERS Safety Report 7366392-9 (Version None)
Quarter: 2011Q1

REPORT INFORMATION
  Report Type: 
  Country: None (occurrence: None)
  Receive Date: 20110322
  Receipt Date: 20110316
  Transmission Date: 20110831
  Serious: Yes (Death, Hospitalization, Other)
  Sender: FDA-Public Use
  Company Number: US-BRISTOL-MYERS SQUIBB COMPANY-14079131

PATIENT
  Age: 71 Year
  Sex: Female
  Weight: 118 kg

DRUGS (5)
  1. CETUXIMAB [Suspect]
     Indication: ANAL CANCER
     Dosage: STARTED ON 08-NOV-2007.
     Dates: start: 20080205, end: 20080227
  2. COUMADIN [Suspect]
  3. MORPHINE SULFATE [Suspect]
  4. CISPLATIN [Suspect]
     Indication: ANAL CANCER
     Dates: start: 20071108
  5. 5-FLUOROURACIL [Suspect]
     Indication: ANAL CANCER
     Dosage: STARTED ON 08-NOV-2007.
     Dates: start: 20080205, end: 20080209

REACTIONS (19)
  - RESPIRATORY FAILURE [None]
  - RECTAL HAEMORRHAGE [None]
  - RENAL FAILURE [None]
  - DIARRHOEA [None]
  - DEHYDRATION [None]
  - ACIDOSIS [None]
  - NAUSEA [None]
  - ASPARTATE AMINOTRANSFERASE INCREASED [None]
  - PLEURAL EFFUSION [None]
  - DERMATITIS [None]
  - INFECTION [None]
  - CHRONIC OBSTRUCTIVE PULMONARY DISEASE [None]
  - PLATELET COUNT DECREASED [None]
  - FATIGUE [None]
  - VOMITING [None]
  - ALANINE AMINOTRANSFERASE INCREASED [None]
  - INTERNATIONAL NORMALISED RATIO INCREASED [None]
  - ILEUS [None]
  - HYPOXIA [None]
